FAERS Safety Report 18284231 (Version 4)
Quarter: 2021Q1

REPORT INFORMATION
  Report Type: Spontaneous
  Country: US (occurrence: US)
  Receive Date: 20200918
  Receipt Date: 20210105
  Transmission Date: 20210419
  Serious: Yes (Other)
  Sender: FDA-Public Use
  Company Number: US-PFIZER INC-2020357372

PATIENT
  Age: 71 Year
  Sex: Female
  Weight: 68 kg

DRUGS (7)
  1. LYRICA [Suspect]
     Active Substance: PREGABALIN
     Dosage: 50 MG, 2X/DAY
     Dates: start: 2020, end: 2020
  2. LYRICA [Suspect]
     Active Substance: PREGABALIN
     Dosage: 75 MG, 3X/DAY
     Route: 048
     Dates: start: 2020
  3. AMITRIPTYLINE [Concomitant]
     Active Substance: AMITRIPTYLINE
     Indication: ANXIETY
     Dosage: 100 MG, 1X/DAY (ONCE A NIGHT)
  4. LYRICA [Suspect]
     Active Substance: PREGABALIN
     Dosage: 75 MG, 2X/DAY
     Dates: start: 2020, end: 2020
  5. LYRICA [Suspect]
     Active Substance: PREGABALIN
     Indication: NEUROPATHY PERIPHERAL
     Dosage: 50 MG, 3X/DAY
     Dates: start: 2020, end: 2020
  6. HYDROCODONE [Concomitant]
     Active Substance: HYDROCODONE
     Indication: BACK PAIN
     Dosage: 1 DF, 4X/DAY (10?325, EVERY 6 HOURS)
     Route: 048
  7. CLONAZEPAM. [Concomitant]
     Active Substance: CLONAZEPAM
     Indication: GENERALISED ANXIETY DISORDER
     Dosage: 0.5 DF, 4X/DAY (HALF A TABLET, TAKES DURING THE DAY)

REACTIONS (14)
  - Peripheral swelling [Unknown]
  - Gait disturbance [Unknown]
  - Expired product administered [Unknown]
  - Breakthrough pain [Unknown]
  - Therapeutic product effect incomplete [Unknown]
  - Urinary tract infection [Unknown]
  - Fluid retention [Unknown]
  - Chromatopsia [Unknown]
  - Fatigue [Unknown]
  - Feeling abnormal [Unknown]
  - Irritability [Unknown]
  - Vitreous floaters [Unknown]
  - Hallucination, auditory [Unknown]
  - Dysstasia [Unknown]

NARRATIVE: CASE EVENT DATE: 2020
